FAERS Safety Report 10016356 (Version 1)
Quarter: 2014Q1

REPORT INFORMATION
  Report Type: Spontaneous
  Country: SE (occurrence: SE)
  Receive Date: 20140317
  Receipt Date: 20140317
  Transmission Date: 20141002
  Serious: Yes (Hospitalization)
  Sender: FDA-Public Use
  Company Number: PHHY2014SE031226

PATIENT
  Age: 74 Year
  Sex: Male

DRUGS (9)
  1. TEGRETOL [Suspect]
     Dosage: UNK UKN, UNK
  2. METOPROLOL [Suspect]
     Dosage: UNK UKN, UNK
  3. OLANZAPINE [Suspect]
     Dosage: UNK UKN, UNK
  4. FELODIPINE [Suspect]
     Dosage: UNK UKN, UNK
  5. LITAREX [Suspect]
     Dosage: UNK UKN, UNK
  6. PROPAVAN [Suspect]
     Dosage: UNK UKN, UNK
  7. ZOPICLONE [Suspect]
     Dosage: UNK UKN, UNK
  8. ETALPHA [Suspect]
     Dosage: UNK UKN, UNK
  9. KALCIDON [Suspect]
     Dosage: UNK UKN, UNK

REACTIONS (2)
  - Toxicity to various agents [Recovered/Resolved]
  - Metabolic acidosis [Unknown]
